FAERS Safety Report 9517054 (Version 2)
Quarter: 2014Q1

REPORT INFORMATION
  Report Type: Spontaneous
  Country: US (occurrence: US)
  Receive Date: 20130911
  Receipt Date: 20140327
  Transmission Date: 20141002
  Serious: No
  Sender: FDA-Public Use
  Company Number: US-PFIZER INC-2013260725

PATIENT
  Age: 47 Year
  Sex: Female

DRUGS (9)
  1. EFFEXOR XR [Suspect]
     Dosage: UNK
  2. AUGMENTIN [Suspect]
     Dosage: UNK
  3. BIAXIN [Suspect]
     Dosage: UNK
  4. PROZAC [Suspect]
     Dosage: UNK
  5. PAXIL [Suspect]
     Dosage: UNK
  6. PERCOCET [Suspect]
     Dosage: UNK
  7. CODEINE [Suspect]
     Dosage: UNK
  8. RYNATAN [Suspect]
     Dosage: UNK
  9. NUBAIN ^DUPONT PHARMA^ [Suspect]
     Dosage: UNK

REACTIONS (1)
  - Drug hypersensitivity [Unknown]
